FAERS Safety Report 15559248 (Version 3)
Quarter: 2023Q2

REPORT INFORMATION
  Report Type: Report from Study
  Country: CN (occurrence: None)
  Receive Date: 20181029
  Receipt Date: 20230516
  Transmission Date: 20230722
  Serious: Yes (Hospitalization)
  Sender: FDA-Public Use
  Company Number: CN-ROCHE-2204918

PATIENT
  Age: 36 Year
  Sex: Female
  Weight: 55 kg

DRUGS (4)
  1. ADO-TRASTUZUMAB EMTANSINE [Suspect]
     Active Substance: ADO-TRASTUZUMAB EMTANSINE
     Indication: Breast cancer
     Dosage: DOSE LAST STUDY DRUG ADMIN PRIOR AE AND SAE 202 MG?START DATE OF MOST RECENT DOSE OF STUDY DRUG PRIO
     Route: 042
     Dates: start: 20171016
  2. FERROUS SUCCINATE [Concomitant]
     Active Substance: FERROUS SUCCINATE
     Dates: start: 20180403, end: 20181001
  3. GLYCYRRHIZIN [Concomitant]
     Active Substance: GLYCYRRHIZIN
     Dates: start: 20180803, end: 20181016
  4. URSODIOL [Concomitant]
     Active Substance: URSODIOL
     Indication: Blood bilirubin decreased
     Dates: start: 20180829, end: 20181016

REACTIONS (1)
  - Drug-induced liver injury [Recovered/Resolved]

NARRATIVE: CASE EVENT DATE: 20181015
